FAERS Safety Report 21392584 (Version 1)
Quarter: 2022Q3

REPORT INFORMATION
  Report Type: Spontaneous
  Country: US (occurrence: None)
  Receive Date: 20220929
  Receipt Date: 20220929
  Transmission Date: 20221027
  Serious: Yes (Other)
  Sender: FDA-Public Use
  Company Number: 2022A326346

PATIENT
  Age: 62 Year
  Sex: Female

DRUGS (5)
  1. FASLODEX [Suspect]
     Active Substance: FULVESTRANT
     Route: 030
  2. KISQALI [Suspect]
     Active Substance: RIBOCICLIB
     Route: 048
  3. FASLODEX [Suspect]
     Active Substance: FULVESTRANT
  4. LETROZOLE [Concomitant]
     Active Substance: LETROZOLE
     Route: 065
  5. ABEMACICLIB [Concomitant]
     Active Substance: ABEMACICLIB
     Route: 065

REACTIONS (6)
  - Malignant neoplasm progression [Unknown]
  - Toxicity to various agents [Unknown]
  - Abdominal lymphadenopathy [Unknown]
  - Neutropenia [Unknown]
  - Herpes zoster [Unknown]
  - Drug tolerance [Unknown]
